FAERS Safety Report 24392958 (Version 1)
Quarter: 2024Q4

REPORT INFORMATION
  Report Type: Spontaneous
  Country: CA (occurrence: CA)
  Receive Date: 20241003
  Receipt Date: 20241003
  Transmission Date: 20250114
  Serious: Yes (Other)
  Sender: DAIICHI
  Company Number: CA-AstraZeneca-CH-00709131A

PATIENT
  Sex: Female
  Weight: 58 kg

DRUGS (8)
  1. TRASTUZUMAB DERUXTECAN [Suspect]
     Active Substance: TRASTUZUMAB DERUXTECAN
     Indication: Product used for unknown indication
     Dosage: 316 MG, 1 EVERY 56 HOURS
     Route: 042
  2. TRASTUZUMAB DERUXTECAN [Suspect]
     Active Substance: TRASTUZUMAB DERUXTECAN
     Dosage: 316 MG, 1 EVERY 56 HOURS
     Route: 042
  3. TRASTUZUMAB DERUXTECAN [Suspect]
     Active Substance: TRASTUZUMAB DERUXTECAN
     Dosage: 316 MG, 1 EVERY 56 HOURS
     Route: 042
  4. TRASTUZUMAB DERUXTECAN [Suspect]
     Active Substance: TRASTUZUMAB DERUXTECAN
     Dosage: 316 MG, 1 EVERY 56 HOURS
     Route: 042
  5. TRASTUZUMAB DERUXTECAN [Suspect]
     Active Substance: TRASTUZUMAB DERUXTECAN
     Dosage: 321 MG, 1 EVERY 56 HOURS
     Route: 042
  6. TRASTUZUMAB DERUXTECAN [Suspect]
     Active Substance: TRASTUZUMAB DERUXTECAN
     Dosage: 321 MG, 1 EVERY 56 HOURS
     Route: 042
  7. TRASTUZUMAB DERUXTECAN [Suspect]
     Active Substance: TRASTUZUMAB DERUXTECAN
     Dosage: 321 MG, 1 EVERY 56 HOURS
     Route: 042
  8. TRASTUZUMAB DERUXTECAN [Suspect]
     Active Substance: TRASTUZUMAB DERUXTECAN
     Dosage: 321 MG, 1 EVERY 56 HOURS
     Route: 042

REACTIONS (3)
  - Weight decreased [Unknown]
  - Nausea [Unknown]
  - Vomiting [Unknown]
